FAERS Safety Report 5931260-3 (Version None)
Quarter: 2008Q4

REPORT INFORMATION
  Report Type: 
  Country: None (occurrence: None)
  Receive Date: 20081027
  Receipt Date: 20080924
  Transmission Date: 20090506
  Serious: No
  Sender: FDA-Public Use
  Company Number: US-BAYER-200825162NA

PATIENT
  Age: 39 Year
  Sex: Female

DRUGS (2)
  1. ULTRAVIST 300 [Suspect]
     Indication: ABDOMINAL PAIN LOWER
     Route: 042
     Dates: start: 20080606
  2. ORAL CONTRAST [Concomitant]
     Route: 048
     Dates: start: 20080606

REACTIONS (7)
  - ERYTHEMA [None]
  - FEELING HOT [None]
  - LIMB DISCOMFORT [None]
  - OEDEMA PERIPHERAL [None]
  - PAIN IN EXTREMITY [None]
  - PRURITUS [None]
  - URTICARIA [None]
